FAERS Safety Report 5378628-4 (Version None)
Quarter: 2007Q3

REPORT INFORMATION
  Report Type: 
  Country: None (occurrence: None)
  Receive Date: 20070702
  Receipt Date: 20070702
  Transmission Date: 20080115
  Serious: Yes (Other)
  Sender: FDA-Public Use
  Company Number: None

PATIENT
  Age: 51 Year
  Sex: Male
  Weight: 64.4108 kg

DRUGS (2)
  1. ENTECAVIR 0.5MG BRISTOL MYERS SQUIBB [Suspect]
     Indication: HEPATITIS B
     Dosage: 0.5MG DAILY PO
     Route: 048
     Dates: start: 20050830, end: 20051129
  2. ENTECAVIR 0.5MG BRISTOL MYERS SQUIBB [Suspect]
     Indication: HEPATITIS B
     Dosage: 0.5MG DAILY PO
     Route: 048
     Dates: start: 20060525, end: 20070605

REACTIONS (2)
  - TREATMENT NONCOMPLIANCE [None]
  - VIRAL MUTATION IDENTIFIED [None]
